FAERS Safety Report 6332945-X (Version None)
Quarter: 2009Q3

REPORT INFORMATION
  Report Type: 
  Country: None (occurrence: None)
  Receive Date: 20090828
  Receipt Date: 20090817
  Transmission Date: 20100115
  Serious: Yes (Other)
  Sender: FDA-Public Use
  Company Number: PHEH2009US09431

PATIENT
  Sex: Male

DRUGS (5)
  1. EXJADE [Suspect]
  2. DESFERAL [Suspect]
     Dosage: 2G/DAY
     Route: 058
     Dates: start: 20070901
  3. DESFERAL [Suspect]
     Dosage: 1G/QOD
     Route: 058
  4. DESFERAL [Suspect]
     Dosage: 1G QD
     Route: 058
  5. DESFERAL [Suspect]
     Dosage: 2G QOD
     Route: 058

REACTIONS (6)
  - CARDIAC FAILURE CONGESTIVE [None]
  - EYE DISORDER [None]
  - LIVER DISORDER [None]
  - MALAISE [None]
  - RENAL DISORDER [None]
  - SERUM FERRITIN INCREASED [None]
